FAERS Safety Report 21743898 (Version 1)
Quarter: 2022Q4

REPORT INFORMATION
  Report Type: Spontaneous
  Country: AT (occurrence: AT)
  Receive Date: 20221217
  Receipt Date: 20221217
  Transmission Date: 20230113
  Serious: No
  Sender: FDA-Public Use
  Company Number: AT-009507513-2212AUT005824

PATIENT
  Age: 25 Year
  Sex: Female

DRUGS (1)
  1. LAGEVRIO [Suspect]
     Active Substance: MOLNUPIRAVIR
     Indication: COVID-19 treatment
     Dosage: CONTENT OF CAPSULES INGESTED SIMULTANEOUSLY WITH FOOD, FOUR TIMES PER DAY
     Route: 048
     Dates: start: 20221213

REACTIONS (3)
  - Off label use [Unknown]
  - Product use issue [Unknown]
  - Wrong technique in product usage process [Unknown]

NARRATIVE: CASE EVENT DATE: 20221213
